FAERS Safety Report 14354336 (Version 2)
Quarter: 2018Q3

REPORT INFORMATION
  Report Type: Spontaneous
  Country: IT (occurrence: IT)
  Receive Date: 20180105
  Receipt Date: 20180928
  Transmission Date: 20181010
  Serious: Yes (Other)
  Sender: FDA-Public Use
  Company Number: IT-SUN PHARMACEUTICAL INDUSTRIES LTD-2017RR-155330

PATIENT
  Age: 71 Year
  Sex: Male

DRUGS (3)
  1. GEMCITABINE [Suspect]
     Active Substance: GEMCITABINE\GEMCITABINE HYDROCHLORIDE
     Indication: BLADDER CANCER
     Dosage: 1650 MG/M2, CYCLIC
     Route: 041
     Dates: start: 20171019, end: 20171019
  2. CARBOPLATIN. [Suspect]
     Active Substance: CARBOPLATIN
     Indication: BLADDER CANCER
     Dosage: 336 OT, CYCLIC ()
     Route: 065
     Dates: start: 20171001
  3. GEMCITABINE [Suspect]
     Active Substance: GEMCITABINE\GEMCITABINE HYDROCHLORIDE
     Dosage: 1650 MG/M2, CYCLIC
     Route: 041
     Dates: start: 20171001, end: 20171001

REACTIONS (4)
  - Hyperthermia [Recovering/Resolving]
  - Chills [Recovering/Resolving]
  - Pancytopenia [Recovering/Resolving]
  - Asthenia [Recovering/Resolving]

NARRATIVE: CASE EVENT DATE: 20171031
